FAERS Safety Report 26196927 (Version 1)
Quarter: 2025Q4

REPORT INFORMATION
  Report Type: Spontaneous
  Country: US (occurrence: US)
  Receive Date: 20251224
  Receipt Date: 20251224
  Transmission Date: 20260117
  Serious: Yes (Hospitalization, Other)
  Sender: BRISTOL-MYERS SQUIBB COMPANY
  Company Number: US-BRISTOL-MYERS SQUIBB COMPANY-2025-170096

PATIENT
  Age: 61 Year
  Sex: Female

DRUGS (1)
  1. BREYANZI [Suspect]
     Active Substance: LISOCABTAGENE MARALEUCEL
     Indication: Lymphoma
     Dosage: FREQUENCY: ONCE
     Route: 042
     Dates: start: 20250214

REACTIONS (6)
  - Drug ineffective [Unknown]
  - Renal disorder [Unknown]
  - Confusional state [Unknown]
  - Multiple organ dysfunction syndrome [Unknown]
  - Blood pressure abnormal [Unknown]
  - Loss of consciousness [Unknown]

NARRATIVE: CASE EVENT DATE: 20250201
